FAERS Safety Report 21050862 (Version 1)
Quarter: 2022Q3

REPORT INFORMATION
  Report Type: Spontaneous
  Country: ES (occurrence: ES)
  Receive Date: 20220707
  Receipt Date: 20220707
  Transmission Date: 20221027
  Serious: Yes (Death, Hospitalization)
  Sender: FDA-Public Use
  Company Number: ES-STRIDES ARCOLAB LIMITED-2022SP008366

PATIENT
  Age: 39 Year
  Sex: Female

DRUGS (2)
  1. DEXAMETHASONE [Suspect]
     Active Substance: DEXAMETHASONE
     Indication: Cerebral toxoplasmosis
     Dosage: UNK
     Route: 065
  2. PYRIMETHAMINE\SULFADIAZINE [Concomitant]
     Active Substance: PYRIMETHAMINE\SULFADIAZINE
     Indication: Cerebral toxoplasmosis
     Dosage: UNK
     Route: 065

REACTIONS (7)
  - Strongyloidiasis [Fatal]
  - Septic shock [Unknown]
  - Meningitis bacterial [Unknown]
  - Pneumonia [Unknown]
  - Meningitis Escherichia [Unknown]
  - Klebsiella infection [Unknown]
  - Off label use [Unknown]
